FAERS Safety Report 24014465 (Version 1)
Quarter: 2024Q2

REPORT INFORMATION
  Report Type: Spontaneous
  Country: GB (occurrence: GB)
  Receive Date: 20240626
  Receipt Date: 20240626
  Transmission Date: 20240716
  Serious: Yes (Other)
  Sender: FDA-Public Use
  Company Number: GB-SUN PHARMACEUTICAL INDUSTRIES LTD-2024RR-453307

PATIENT
  Age: 55 Year
  Sex: Male

DRUGS (15)
  1. VENLAFAXINE [Suspect]
     Active Substance: VENLAFAXINE HYDROCHLORIDE
     Indication: Schizophrenia
     Dosage: UNK
     Route: 065
  2. QUETIAPINE [Suspect]
     Active Substance: QUETIAPINE
     Indication: Schizophrenia
     Dosage: UNK
     Route: 065
  3. LAMOTRIGINE [Suspect]
     Active Substance: LAMOTRIGINE
     Indication: Seizure prophylaxis
     Dosage: 200 MILLIGRAM, DAILY
     Route: 065
  4. LAMOTRIGINE [Suspect]
     Active Substance: LAMOTRIGINE
     Dosage: 300 MILLIGRAM, DAILY
     Route: 065
  5. LAMOTRIGINE [Suspect]
     Active Substance: LAMOTRIGINE
     Dosage: UNK
  6. LORAZEPAM [Suspect]
     Active Substance: LORAZEPAM
     Indication: Seizure prophylaxis
     Dosage: 1 MILLIGRAM, QID
     Route: 065
  7. OLANZAPINE [Suspect]
     Active Substance: OLANZAPINE
     Indication: Schizophrenia
     Dosage: UNK
     Route: 065
  8. VALPROIC ACID [Suspect]
     Active Substance: VALPROIC ACID
     Indication: Seizure
     Dosage: 1.5 GRAM, DAILY
     Route: 065
  9. DIAZEPAM [Suspect]
     Active Substance: DIAZEPAM
     Indication: Seizure
     Dosage: UNK
     Route: 065
  10. CLOZAPINE [Suspect]
     Active Substance: CLOZAPINE
     Indication: Schizophrenia
     Dosage: UNK
     Route: 065
     Dates: start: 2015
  11. CLOZAPINE [Suspect]
     Active Substance: CLOZAPINE
     Dosage: UNK
     Route: 065
     Dates: start: 2016
  12. LITHIUM [Suspect]
     Active Substance: LITHIUM
     Indication: Schizophrenia
     Dosage: UNK
     Route: 065
  13. LURASIDONE [Suspect]
     Active Substance: LURASIDONE
     Indication: Schizophrenia
     Dosage: UNK
     Route: 065
  14. PIMOZIDE [Suspect]
     Active Substance: PIMOZIDE
     Indication: Schizophrenia
     Dosage: UNK
     Route: 065
  15. FLUPENTIXOL [Suspect]
     Active Substance: FLUPENTIXOL
     Indication: Schizophrenia
     Dosage: UNK
     Route: 065

REACTIONS (11)
  - Constipation [Unknown]
  - Generalised tonic-clonic seizure [Unknown]
  - Obsessive-compulsive symptom [Unknown]
  - Drug ineffective [Unknown]
  - Tachycardia [Unknown]
  - Blood creatinine increased [Unknown]
  - Troponin increased [Unknown]
  - Salivary hypersecretion [Unknown]
  - Sedation [Unknown]
  - Condition aggravated [Unknown]
  - Drug resistance [Unknown]
